FAERS Safety Report 7796197-6 (Version None)
Quarter: 2011Q4

REPORT INFORMATION
  Report Type: 
  Country: None (occurrence: None)
  Receive Date: 20111004
  Receipt Date: 20110922
  Transmission Date: 20120403
  Serious: Yes (Hospitalization, Other)
  Sender: FDA-Public Use
  Company Number: BR-NOVOPROD-334955

PATIENT

DRUGS (2)
  1. LEVEMIR [Suspect]
     Indication: TYPE 1 DIABETES MELLITUS
     Dosage: 28 U, QD
     Route: 058
     Dates: start: 20010101
  2. NOVORAPID FLEXPEN [Suspect]
     Indication: TYPE 1 DIABETES MELLITUS
     Dosage: RANGES ACCORDING TO GLYCAEMIA / SC
     Route: 058
     Dates: start: 20010101

REACTIONS (11)
  - CARDIAC ARREST [None]
  - GROWTH RETARDATION [None]
  - PAIN IN EXTREMITY [None]
  - HEADACHE [None]
  - LIPODYSTROPHY ACQUIRED [None]
  - HYPERGLYCAEMIA [None]
  - DIABETES MELLITUS INADEQUATE CONTROL [None]
  - HYPOGLYCAEMIA [None]
  - ABDOMINAL PAIN [None]
  - ATROPHY [None]
  - HYPOAESTHESIA [None]
